FAERS Safety Report 20595320 (Version 1)
Quarter: 2022Q1

REPORT INFORMATION
  Report Type: Spontaneous
  Country: US (occurrence: US)
  Receive Date: 20220315
  Receipt Date: 20220315
  Transmission Date: 20220423
  Serious: Yes (Hospitalization)
  Sender: FDA-Public Use
  Company Number: US-NOVARTISPH-NVSC2022US053824

PATIENT

DRUGS (6)
  1. SANDOSTATIN LAR DEPOT [Suspect]
     Active Substance: OCTREOTIDE ACETATE
     Indication: Product used for unknown indication
     Dosage: UNK
     Route: 065
  2. SANDOSTATIN LAR DEPOT [Suspect]
     Active Substance: OCTREOTIDE ACETATE
  3. SANDOSTATIN LAR DEPOT [Suspect]
     Active Substance: OCTREOTIDE ACETATE
  4. SOMAVERT [Suspect]
     Active Substance: PEGVISOMANT
     Indication: Acromegaly
     Dosage: 30 MG, QD
     Route: 058
     Dates: start: 20140101, end: 20200901
  5. SOMAVERT [Suspect]
     Active Substance: PEGVISOMANT
     Dosage: 30 MG, QD
     Route: 058
     Dates: start: 20200905, end: 20211001
  6. SOMAVERT [Suspect]
     Active Substance: PEGVISOMANT
     Dosage: 30 MG, QD
     Route: 058
     Dates: start: 20211010

REACTIONS (5)
  - Gallbladder disorder [Recovered/Resolved]
  - Biliary obstruction [Recovered/Resolved]
  - Hepatic function abnormal [Recovered/Resolved]
  - Renal impairment [Recovered/Resolved]
  - Pancreatic disorder [Recovered/Resolved]
